FAERS Safety Report 9281804 (Version 3)
Quarter: 2013Q4

REPORT INFORMATION
  Report Type: Spontaneous
  Country: GB (occurrence: GB)
  Receive Date: 20130510
  Receipt Date: 20131018
  Transmission Date: 20140711
  Serious: Yes (Life-Threatening, Other)
  Sender: FDA-Public Use
  Company Number: GB-AMGEN-GBRSP2013032582

PATIENT
  Age: 71 Year
  Sex: Female
  Weight: 70 kg

DRUGS (8)
  1. ENBREL [Suspect]
     Indication: RHEUMATOID ARTHRITIS
     Dosage: 50 MG, WEEKLY
     Route: 058
     Dates: start: 20080930, end: 20130402
  2. CHLORPHENIRAMINE                   /00072501/ [Concomitant]
     Dosage: UNK
  3. FLUCLOXACILLIN [Concomitant]
     Dosage: UNK
  4. LORATADINE [Concomitant]
     Dosage: UNK
  5. LOPERAMIDE [Concomitant]
     Dosage: UNK
  6. LEVOTHYROXINE [Concomitant]
     Dosage: UNK
  7. OMEPRAZOLE [Concomitant]
     Dosage: UNK
  8. CYCLIZINE [Concomitant]
     Dosage: UNK

REACTIONS (5)
  - Systemic lupus erythematosus [Recovered/Resolved]
  - Rash erythematous [Recovered/Resolved]
  - Exfoliative rash [Recovered/Resolved]
  - Dermatitis bullous [Recovered/Resolved]
  - Toxic epidermal necrolysis [Unknown]
